FAERS Safety Report 7326782-7 (Version None)
Quarter: 2011Q1

REPORT INFORMATION
  Report Type: 
  Country: None (occurrence: None)
  Receive Date: 20110302
  Receipt Date: 20091123
  Transmission Date: 20110831
  Serious: Yes (Other)
  Sender: FDA-Public Use
  Company Number: US-PFIZER INC-2009255693

PATIENT
  Sex: Female

DRUGS (2)
  1. DILANTIN [Suspect]
     Indication: CONVULSION
     Dosage: 1 G, UNK
     Route: 042
     Dates: start: 20060217, end: 20060219
  2. DILANTIN-125 [Suspect]
     Indication: CONVULSION
     Dosage: 350 MG, 1X/DAY
     Route: 048
     Dates: start: 20060217, end: 20060219

REACTIONS (1)
  - STEVENS-JOHNSON SYNDROME [None]
